FAERS Safety Report 21516051 (Version 1)
Quarter: 2022Q4

REPORT INFORMATION
  Report Type: Report from Study
  Country: US (occurrence: US)
  Receive Date: 20221027
  Receipt Date: 20221027
  Transmission Date: 20230113
  Serious: Yes (Hospitalization)
  Sender: FDA-Public Use
  Company Number: US-GW PHARMA-2022-US-033567

PATIENT
  Sex: Female

DRUGS (2)
  1. EPIDIOLEX [Suspect]
     Active Substance: CANNABIDIOL
     Indication: Infantile spasms
     Dosage: 0.25 MILLIGRAM, BID
     Route: 048
     Dates: start: 202208
  2. EPIDIOLEX [Suspect]
     Active Substance: CANNABIDIOL
     Dosage: 0.5 MILLIGRAM, BID
     Route: 048
     Dates: start: 202208

REACTIONS (3)
  - Gastrointestinal disorder [Unknown]
  - Vomiting [Unknown]
  - Off label use [Unknown]
